FAERS Safety Report 5097620-0 (Version None)
Quarter: 2006Q3

REPORT INFORMATION
  Report Type: 
  Country: None (occurrence: None)
  Receive Date: 20060901
  Receipt Date: 20060821
  Transmission Date: 20061208
  Serious: Yes (Other)
  Sender: FDA-Public Use
  Company Number: 2006101754

PATIENT
  Age: 35 Year
  Sex: Male
  Weight: 167.8309 kg

DRUGS (3)
  1. ZVYOX TABLET (LINEZOLID) [Suspect]
     Indication: INFECTION
     Dosage: 1200 MG (600 MG,2 IN 1 D), ORAL
     Route: 048
     Dates: start: 20060808
  2. AVANDIA [Concomitant]
  3. METFORMIN HCL [Concomitant]

REACTIONS (3)
  - ABDOMINAL PAIN UPPER [None]
  - BLOOD URINE PRESENT [None]
  - DIZZINESS [None]
